FAERS Safety Report 5588367-2 (Version None)
Quarter: 2008Q1

REPORT INFORMATION
  Report Type: 
  Country: None (occurrence: None)
  Receive Date: 20080111
  Receipt Date: 20071127
  Transmission Date: 20080703
  Serious: No
  Sender: FDA-Public Use
  Company Number: A0687577A

PATIENT
  Age: 52 Year
  Sex: Female
  Weight: 161.4 kg

DRUGS (9)
  1. TYKERB [Suspect]
     Indication: BREAST CANCER
     Dosage: 5TAB PER DAY
     Route: 048
     Dates: start: 20070801
  2. XELODA [Concomitant]
     Indication: BREAST CANCER
     Dosage: 2000MG TWICE PER DAY
     Route: 048
     Dates: start: 20070718
  3. CALCIUM GLUCONATE [Concomitant]
  4. QUININE [Concomitant]
  5. MAGNESIUM [Concomitant]
  6. TYLENOL [Concomitant]
  7. BENADRYL [Concomitant]
  8. IRON [Concomitant]
  9. UNKNOWN MEDICATION [Concomitant]

REACTIONS (7)
  - BLISTER [None]
  - DIARRHOEA [None]
  - MOUTH ULCERATION [None]
  - NAUSEA [None]
  - RASH [None]
  - RASH VESICULAR [None]
  - VOMITING [None]
